FAERS Safety Report 7300905-8 (Version None)
Quarter: 2010Q4

REPORT INFORMATION
  Report Type: 
  Country: None (occurrence: None)
  Receive Date: 20101230
  Receipt Date: 20101202
  Transmission Date: 20110411
  Serious: Yes (Other)
  Sender: FDA-Public Use
  Company Number: 20100548

PATIENT
  Age: 34 Year
  Sex: Female

DRUGS (1)
  1. VENOFER [Suspect]
     Indication: IRON DEFICIENCY ANAEMIA
     Dosage: 300 MG IN 250 ML NS/1 HOUR INTRAVENOUS DRIP
     Route: 041
     Dates: start: 20100318, end: 20100318

REACTIONS (6)
  - DIARRHOEA [None]
  - HYPOTENSION [None]
  - NAUSEA [None]
  - SYNCOPE [None]
  - TACHYCARDIA [None]
  - VOMITING [None]
